FAERS Safety Report 6621831-3 (Version None)
Quarter: 2010Q1

REPORT INFORMATION
  Report Type: 
  Country: None (occurrence: None)
  Receive Date: 20100223
  Receipt Date: 20091210
  Transmission Date: 20100710
  Serious: No
  Sender: FDA-Public Use
  Company Number: 002893

PATIENT
  Sex: Female
  Weight: 84.8226 kg

DRUGS (7)
  1. CIMZIA [Suspect]
     Indication: CROHN'S DISEASE
     Dosage: (400 MG 1X/MONTH SUBCUTANEOUS)
     Route: 058
  2. ASACOL [Concomitant]
  3. LISINOPRIL [Concomitant]
  4. PROTONIX /01263201/ [Concomitant]
  5. PREDNISONE [Concomitant]
  6. NORCO [Concomitant]
  7. CALCIUM [Concomitant]

REACTIONS (2)
  - INJECTION SITE HAEMATOMA [None]
  - INJECTION SITE PAIN [None]
